FAERS Safety Report 24728087 (Version 1)
Quarter: 2024Q4

REPORT INFORMATION
  Report Type: Spontaneous
  Country: SE (occurrence: SE)
  Receive Date: 20241212
  Receipt Date: 20241212
  Transmission Date: 20250115
  Serious: Yes (Other)
  Sender: MYLAN
  Company Number: SE-Desitin-2024-02917

PATIENT

DRUGS (15)
  1. TOPIRAMATE [Interacting]
     Active Substance: TOPIRAMATE
     Indication: Antipsychotic therapy
     Dosage: UNK
     Route: 065
  2. CLOZAPINE [Interacting]
     Active Substance: CLOZAPINE
     Indication: Antipsychotic therapy
     Dosage: UNK
     Route: 065
  3. ZOLPIDEM [Suspect]
     Active Substance: ZOLPIDEM TARTRATE
     Indication: Antipsychotic therapy
     Dosage: UNK
     Route: 065
  4. MORPHINE [Suspect]
     Active Substance: MORPHINE
     Indication: Antipsychotic therapy
     Dosage: UNK
     Route: 065
  5. ALPRAZOLAM [Suspect]
     Active Substance: ALPRAZOLAM
     Indication: Antipsychotic therapy
     Dosage: UNK
     Route: 065
  6. VALPROATE SODIUM [Interacting]
     Active Substance: VALPROATE SODIUM
     Indication: Antipsychotic therapy
     Dosage: UNK
     Route: 065
  7. CLONAZEPAM [Suspect]
     Active Substance: CLONAZEPAM
     Indication: Antipsychotic therapy
     Dosage: UNK
     Route: 065
  8. DIAZEPAM [Interacting]
     Active Substance: DIAZEPAM
     Indication: Antipsychotic therapy
     Dosage: UNK
     Route: 065
  9. OXAZEPAM [Suspect]
     Active Substance: OXAZEPAM
     Indication: Antipsychotic therapy
     Dosage: UNK
     Route: 065
  10. DISULFIRAM [Interacting]
     Active Substance: DISULFIRAM
     Indication: Antipsychotic therapy
     Dosage: UNK
     Route: 065
  11. PERPHENAZINE [Suspect]
     Active Substance: PERPHENAZINE
     Indication: Product used for unknown indication
     Dosage: UNK
     Route: 065
  12. PERPHENAZINE DECANOATE [Suspect]
     Active Substance: PERPHENAZINE DECANOATE
     Indication: Product used for unknown indication
     Dosage: UNK
     Route: 065
  13. TRIMEPRAZINE [Suspect]
     Active Substance: TRIMEPRAZINE
     Indication: Product used for unknown indication
     Dosage: UNK
     Route: 065
  14. LEVOMEPROMAZINE [Suspect]
     Active Substance: LEVOMEPROMAZINE
     Indication: Product used for unknown indication
     Dosage: UNK
     Route: 065
  15. LITHIUM [Suspect]
     Active Substance: LITHIUM
     Indication: Product used for unknown indication
     Dosage: UNK
     Route: 065

REACTIONS (8)
  - Sedation complication [Unknown]
  - Drug interaction [Unknown]
  - Fall [Unknown]
  - Loss of consciousness [Unknown]
  - Neuroleptic malignant syndrome [Unknown]
  - Depressed level of consciousness [Unknown]
  - Somnolence [Unknown]
  - Chest pain [Unknown]
